FAERS Safety Report 16255617 (Version 1)
Quarter: 2019Q2

REPORT INFORMATION
  Report Type: Spontaneous
  Country: US (occurrence: US)
  Receive Date: 20190430
  Receipt Date: 20190430
  Transmission Date: 20190711
  Serious: No
  Sender: FDA-Public Use
  Company Number: US-BAYER-2019-084810

PATIENT
  Age: 16 Year
  Sex: Female

DRUGS (2)
  1. LEVONORGESTREL. [Suspect]
     Active Substance: LEVONORGESTREL
     Dosage: UNK
     Route: 015
  2. LEVONORGESTREL INTRAUTERINE DEVICE [Suspect]
     Active Substance: LEVONORGESTREL

REACTIONS (4)
  - Menorrhagia [None]
  - Unintentional medical device removal [Recovered/Resolved]
  - Device expulsion [Recovered/Resolved]
  - Pelvic pain [None]
